FAERS Safety Report 14026903 (Version 14)
Quarter: 2020Q4

REPORT INFORMATION
  Report Type: Report from Study
  Country: DE (occurrence: DE)
  Receive Date: 20170929
  Receipt Date: 20201119
  Transmission Date: 20210113
  Serious: Yes (Other)
  Sender: FDA-Public Use
  Company Number: DE-BRISTOL-MYERS SQUIBB COMPANY-BMS-2017-085161

PATIENT
  Age: 54 Year
  Sex: Male

DRUGS (8)
  1. METOHEXAL [METOPROLOL TARTRATE] [Concomitant]
     Active Substance: METOPROLOL TARTRATE
     Indication: CEREBROVASCULAR DISORDER
     Dosage: 1 DF, UNK, 47.25
     Route: 065
  2. TAVEGIL [CLEMASTINE] [Concomitant]
     Active Substance: CLEMASTINE
     Indication: PROPHYLAXIS
     Dosage: 2 MILLIGRAM
     Route: 065
     Dates: start: 20161027
  3. ASPIRIN. [Concomitant]
     Active Substance: ASPIRIN
     Indication: PRODUCT USED FOR UNKNOWN INDICATION
     Dosage: 100 MG, UNK
     Route: 065
  4. CALCIMAGON [CALCIUM] [Concomitant]
     Indication: PROPHYLAXIS
     Dosage: UNK
     Route: 065
     Dates: start: 20170706
  5. RAMILICH [Concomitant]
     Active Substance: RAMIPRIL
     Indication: CEREBROVASCULAR DISORDER
     Dosage: 1 DF, (DOSE-2.5)
     Route: 065
  6. SIMVABETA [Concomitant]
     Active Substance: SIMVASTATIN
     Indication: PRODUCT USED FOR UNKNOWN INDICATION
     Dosage: 20 MG, UNK
     Route: 065
  7. NIVOLUMAB [Suspect]
     Active Substance: NIVOLUMAB
     Indication: NON-SMALL CELL LUNG CANCER
     Dosage: 240 MG, Q2WK
     Route: 042
     Dates: start: 20161027
  8. RANITIDIN [Concomitant]
     Active Substance: RANITIDINE HYDROCHLORIDE
     Indication: PROPHYLAXIS
     Dosage: 1 DOSAGE FORM
     Route: 065
     Dates: start: 20161027

REACTIONS (11)
  - Tooth disorder [Recovered/Resolved]
  - Back pain [Recovered/Resolved]
  - Malignant pleural effusion [Unknown]
  - Hypothyroidism [Recovering/Resolving]
  - Pulpitis dental [Recovered/Resolved]
  - Pericardial effusion [Unknown]
  - Polyneuropathy [Recovered/Resolved]
  - Cough [Recovered/Resolved]
  - Muscle spasms [Recovered/Resolved]
  - Pyrexia [Recovered/Resolved]
  - Malignant neoplasm progression [Recovering/Resolving]

NARRATIVE: CASE EVENT DATE: 201701
